FAERS Safety Report 4824795-8 (Version None)
Quarter: 2005Q4

REPORT INFORMATION
  Report Type: 
  Country: None (occurrence: None)
  Receive Date: 20051014
  Receipt Date: 20050822
  Transmission Date: 20060501
  Serious: No
  Sender: FDA-Public Use
  Company Number: 2005SP002453

PATIENT
  Age: 73 Year
  Sex: Female

DRUGS (4)
  1. LUNESTA [Suspect]
     Dosage: 1 MG;HS;ORAL
     Route: 048
     Dates: start: 20050801
  2. NEXIUM [Concomitant]
  3. PRINIVIL [Concomitant]
  4. FOLIC ACID [Concomitant]

REACTIONS (2)
  - DRUG INEFFECTIVE [None]
  - INSOMNIA [None]
